FAERS Safety Report 6217501-6 (Version None)
Quarter: 2009Q2

REPORT INFORMATION
  Report Type: 
  Country: None (occurrence: None)
  Receive Date: 20090608
  Receipt Date: 20081217
  Transmission Date: 20091009
  Serious: No
  Sender: FDA-Public Use
  Company Number: A0760909A

PATIENT
  Sex: Male

DRUGS (4)
  1. WELLBUTRIN XL [Suspect]
     Indication: DEPRESSION
     Dosage: 300MG PER DAY
     Route: 048
     Dates: start: 20081119
  2. WELLBUTRIN [Suspect]
     Indication: DEPRESSION
     Route: 048
     Dates: start: 19980101
  3. KLONOPIN [Suspect]
     Indication: SKIN DISORDER
     Dosage: .1MG TWICE PER DAY
     Route: 048
     Dates: start: 19980101
  4. ACIPHEX [Concomitant]

REACTIONS (11)
  - DIZZINESS [None]
  - DYSGEUSIA [None]
  - INSOMNIA [None]
  - PAIN OF SKIN [None]
  - PARAESTHESIA [None]
  - PRURITUS [None]
  - SKIN BURNING SENSATION [None]
  - SLEEP DISORDER [None]
  - THERAPEUTIC RESPONSE UNEXPECTED [None]
  - THERMAL BURN [None]
  - TREMOR [None]
